FAERS Safety Report 5957534-8 (Version None)
Quarter: 2008Q4

REPORT INFORMATION
  Report Type: 
  Country: None (occurrence: None)
  Receive Date: 20081114
  Receipt Date: 20081105
  Transmission Date: 20090506
  Serious: Yes (Congenital Anomaly)
  Sender: FDA-Public Use
  Company Number: US024988

PATIENT
  Sex: Female

DRUGS (1)
  1. MODAFINIL [Suspect]
     Dosage: 100 MG BID TRANSPLACENTAL
     Route: 064
     Dates: start: 20010901, end: 20020601

REACTIONS (4)
  - MATERNAL DRUGS AFFECTING FOETUS [None]
  - NEONATAL DISORDER [None]
  - SCAR [None]
  - VESICOURETERIC REFLUX [None]
